FAERS Safety Report 5507052-6 (Version None)
Quarter: 2007Q4

REPORT INFORMATION
  Report Type: 
  Country: None (occurrence: None)
  Receive Date: 20071105
  Receipt Date: 20071030
  Transmission Date: 20080405
  Serious: Yes (Life-Threatening, Hospitalization)
  Sender: FDA-Public Use
  Company Number: DE-BOEHRINGER INGELHEIM PHARMACEUTICALS, INC.-2007-DE-06329DE

PATIENT
  Sex: Female

DRUGS (5)
  1. AGGRENOX [Suspect]
     Indication: POST PROCEDURAL STROKE
     Dates: start: 20070801, end: 20070926
  2. AGGRENOX [Suspect]
     Indication: HEMIPARESIS
  3. AGGRENOX [Suspect]
     Indication: DYSARTHRIA
  4. AGGRENOX [Suspect]
     Indication: CEREBROVASCULAR ACCIDENT
  5. OMEPRAZOLE [Concomitant]

REACTIONS (5)
  - DUODENAL ULCER [None]
  - GASTRIC ULCER [None]
  - GASTROINTESTINAL HAEMORRHAGE [None]
  - HAEMOGLOBIN DECREASED [None]
  - HELICOBACTER INFECTION [None]
